FAERS Safety Report 8634698 (Version 2)
Quarter: 2012Q4

REPORT INFORMATION
  Report Type: 
  Country: US (occurrence: US)
  Receive Date: 20120626
  Receipt Date: 20120928
  Transmission Date: 20130627
  Serious: No
  Sender: FDA-Public Use
  Company Number: PHEH2012US012544

PATIENT
  Age: 45 Year
  Sex: Female
  Weight: 60.78 kg

DRUGS (10)
  1. GILENYA [Suspect]
     Indication: MULTIPLE SCLEROSIS
     Dosage: 0.5 mg, QD
     Route: 048
     Dates: start: 20111027
  2. GILENYA [Suspect]
     Dosage: 0.5 mg, QD
     Route: 048
     Dates: start: 20120409, end: 20120507
  3. DIAZEPAM [Concomitant]
     Indication: VERTIGO
     Dosage: 2 mg, TID
  4. CYANOCOBALAMIN [Concomitant]
     Dosage: 1 ml, QMO
  5. BACLOFEN [Concomitant]
     Dosage: 2 DF, TID
  6. CARBAMAZEPINE [Concomitant]
     Dosage: 1 DF, BID
  7. NASONEX [Concomitant]
     Dosage: 2 puffs in each nostril once daily
  8. PROVIGIL [Concomitant]
     Dosage: 1 DF, BID
  9. TUSSIN SYRUP [Concomitant]
     Dosage: 10 ml, PRN
  10. KADIAN [Concomitant]
     Dosage: 1 DF, QD

REACTIONS (34)
  - Palpitations [Recovered/Resolved]
  - Spinal osteoarthritis [Unknown]
  - Fall [Unknown]
  - Trigeminal neuralgia [Recovering/Resolving]
  - Memory impairment [Unknown]
  - Sinus congestion [Unknown]
  - Stress [Unknown]
  - Fatigue [Unknown]
  - Incontinence [Unknown]
  - Decreased appetite [Unknown]
  - Pyrexia [Unknown]
  - Balance disorder [Unknown]
  - Gait disturbance [Unknown]
  - Muscle spasticity [Unknown]
  - Musculoskeletal stiffness [Unknown]
  - Dysarthria [Unknown]
  - Joint range of motion decreased [Unknown]
  - Muscle spasms [Unknown]
  - Dysphagia [Unknown]
  - Monocyte count increased [Unknown]
  - Pain [Unknown]
  - Temperature intolerance [Unknown]
  - Paraesthesia [Unknown]
  - Blood pressure increased [Unknown]
  - Dyspnoea [Unknown]
  - Vision blurred [Unknown]
  - Asthenia [Unknown]
  - Back pain [Unknown]
  - Depressed mood [Unknown]
  - White blood cell count decreased [Unknown]
  - Neutrophil count decreased [Unknown]
  - Lymphocyte count decreased [Unknown]
  - Hypophagia [None]
  - Negative thoughts [None]
